FAERS Safety Report 5658259-9 (Version None)
Quarter: 2008Q1

REPORT INFORMATION
  Report Type: 
  Country: None (occurrence: None)
  Receive Date: 20080310
  Receipt Date: 20070116
  Transmission Date: 20080703
  Serious: No
  Sender: FDA-Public Use
  Company Number: US-BAYER-200710180BCC

PATIENT
  Sex: Female
  Weight: 75 kg

DRUGS (13)
  1. ALEVE [Suspect]
     Indication: ARTHRITIS
     Dosage: UNIT DOSE: 220 MG
  2. ALEVE [Suspect]
     Dosage: UNIT DOSE: 220 MG
  3. VYTORIN [Concomitant]
  4. SYNTHROID [Concomitant]
  5. PRILOSEC [Concomitant]
  6. IMDUR [Concomitant]
  7. NORVASC [Concomitant]
  8. METAPROTERENOL [Concomitant]
  9. MULTI-VITAMIN [Concomitant]
  10. CALCIUM [Concomitant]
  11. WATERPILLS [Concomitant]
  12. FERROUS [Concomitant]
  13. GLUCONATE [Concomitant]

REACTIONS (1)
  - BLISTER [None]
